FAERS Safety Report 6824164-5 (Version None)
Quarter: 2010Q3

REPORT INFORMATION
  Report Type: 
  Country: None (occurrence: None)
  Receive Date: 20100708
  Receipt Date: 20100629
  Transmission Date: 20110219
  Serious: Yes (Hospitalization)
  Sender: FDA-Public Use
  Company Number: ES-ABBOTT-10P-144-0651902-00

PATIENT
  Sex: Female
  Weight: 65 kg

DRUGS (15)
  1. HUMIRA [Suspect]
     Indication: RHEUMATOID ARTHRITIS
     Route: 058
     Dates: start: 20041001
  2. HUMIRA [Concomitant]
     Route: 058
     Dates: start: 20040411
  3. HUMIRA [Concomitant]
     Route: 058
     Dates: start: 20031001
  4. LANSOPRAZOLE [Concomitant]
     Indication: GASTRIC DISORDER
     Dates: start: 20070701
  5. LANSOPRAZOLE [Concomitant]
     Indication: PROPHYLAXIS
  6. SEROXAT [Concomitant]
     Indication: DEPRESSION
     Dates: start: 20040101
  7. DURAGESIC-100 [Concomitant]
     Indication: PAIN
     Dates: start: 20040101
  8. ATENOLOL [Concomitant]
     Indication: HYPERTENSION
     Dates: start: 20040101
  9. ENALAPRIL MALEATE [Concomitant]
     Indication: HYPERTENSION
     Dates: start: 20040101
  10. ADIRO [Concomitant]
     Indication: PROPHYLAXIS
     Dates: start: 20040101
  11. CALCIO [Concomitant]
     Indication: OSTEOPOROSIS
     Dates: start: 20040101
  12. ZALDIAR [Concomitant]
     Indication: PAIN
     Dosage: 37.5/325 MG
     Dates: start: 20060101
  13. DOLQUINE [Concomitant]
     Indication: RHEUMATOID ARTHRITIS
     Dates: start: 20041201
  14. XEROXTON [Concomitant]
     Indication: DRY EYE
     Dates: start: 20060101
  15. VISLOFRESH [Concomitant]
     Indication: DRY EYE
     Dates: start: 20060101

REACTIONS (1)
  - PULMONARY HYPERTENSION [None]
